FAERS Safety Report 4548781-0 (Version None)
Quarter: 2004Q4

REPORT INFORMATION
  Report Type: 
  Country: None (occurrence: None)
  Receive Date: 20041223
  Receipt Date: 20041117
  Transmission Date: 20050328
  Serious: Yes (Other)
  Sender: FDA-Public Use
  Company Number: US-JNJFOC-20041105100

PATIENT
  Age: 23 Year
  Sex: Female
  Weight: 49.8957 kg

DRUGS (2)
  1. ORTHO EVRA [Suspect]
     Indication: CONTRACEPTION
     Dosage: 1 DOSE(S), 3 IN 4 WEEK, TRANSDERMAL
     Route: 062
  2. ORTHO EVRA [Suspect]
     Indication: DYSPLASIA
     Dosage: 1 DOSE(S), 3 IN 4 WEEK, TRANSDERMAL
     Route: 062

REACTIONS (5)
  - ABDOMINAL DISTENSION [None]
  - BREAST DISORDER [None]
  - CERVICAL DYSPLASIA [None]
  - HUNGER [None]
  - NAUSEA [None]
